FAERS Safety Report 16867666 (Version 1)
Quarter: 2019Q3

REPORT INFORMATION
  Report Type: Spontaneous
  Country: US (occurrence: US)
  Receive Date: 20190806
  Receipt Date: 20190806
  Transmission Date: 20191005
  Serious: Yes (Hospitalization)
  Sender: FDA-Public Use
  Company Number: None

PATIENT
  Sex: Female

DRUGS (19)
  1. ACAMPRO CAL [Concomitant]
  2. AZELASTINE SPR [Concomitant]
  3. HYDRALAZINE [Concomitant]
     Active Substance: HYDRALAZINE HYDROCHLORIDE
  4. MOMETASONE SPR [Concomitant]
  5. ESOMEPRA MAG [Concomitant]
  6. MONTELUKAST [Concomitant]
     Active Substance: MONTELUKAST SODIUM
  7. IPRATROPIUM [Concomitant]
     Active Substance: IPRATROPIUM
  8. PRAZOSIN HCL [Concomitant]
     Active Substance: PRAZOSIN HYDROCHLORIDE
  9. LEVOTHYROXIN [Concomitant]
     Active Substance: LEVOTHYROXINE
  10. MYRBETRIO [Concomitant]
  11. LOSARTAN. [Concomitant]
     Active Substance: LOSARTAN
  12. VIVITROL [Suspect]
     Active Substance: NALTREXONE
     Indication: ALCOHOLISM
     Dosage: ?          OTHER FREQUENCY:EVERY4WEEKS ;?
     Route: 030
     Dates: start: 20190606
  13. MELOXICAM. [Concomitant]
     Active Substance: MELOXICAM
  14. METOPROLOL TARTRATE. [Concomitant]
     Active Substance: METOPROLOL TARTRATE
  15. FLUCETINE [Concomitant]
  16. METHOCARBAN [Concomitant]
  17. MODAFINIL. [Concomitant]
     Active Substance: MODAFINIL
  18. PRADAXA [Suspect]
     Active Substance: DABIGATRAN ETEXILATE MESYLATE
  19. TIAGABINE [Concomitant]
     Active Substance: TIAGABINE

REACTIONS (1)
  - Hospitalisation [None]
